FAERS Safety Report 19245069 (Version 1)
Quarter: 2021Q2

REPORT INFORMATION
  Report Type: Spontaneous
  Country: FR (occurrence: FR)
  Receive Date: 20210511
  Receipt Date: 20210511
  Transmission Date: 20210717
  Serious: Yes (Hospitalization)
  Sender: FDA-Public Use
  Company Number: FR-PFIZER INC-2021484101

PATIENT
  Age: 62 Year
  Sex: Female
  Weight: 70 kg

DRUGS (5)
  1. PERINDOPRIL [Suspect]
     Active Substance: PERINDOPRIL
     Indication: HYPERTENSION
     Dosage: 2 MG, 1X/DAY
     Route: 048
     Dates: start: 20210408
  2. AMLODIPINE [Suspect]
     Active Substance: AMLODIPINE BESYLATE
     Dosage: 10 MG, 1X/DAY
     Route: 048
     Dates: start: 20210406
  3. ENOXAPARINE [Suspect]
     Active Substance: ENOXAPARIN
     Indication: THROMBOSIS PROPHYLAXIS
     Dosage: 40 MG, 1X/DAY
     Route: 058
     Dates: start: 20210406, end: 20210419
  4. AMLODIPINE [Suspect]
     Active Substance: AMLODIPINE BESYLATE
     Indication: HYPERTENSION
     Dosage: 5 MG, 1X/DAY
     Route: 048
     Dates: start: 20210405, end: 20210405
  5. COMIRNATY [Suspect]
     Active Substance: TOZINAMERAN
     Indication: COVID-19 IMMUNISATION
     Dosage: 1ST DOSE, SINGLE
     Route: 030
     Dates: start: 20210409, end: 20210409

REACTIONS (6)
  - Liver disorder [Unknown]
  - Hepatic cytolysis [Not Recovered/Not Resolved]
  - Hepatic steatosis [Unknown]
  - Calculus bladder [Unknown]
  - Hepatomegaly [Unknown]
  - Pancreatic steatosis [Unknown]

NARRATIVE: CASE EVENT DATE: 20210412
